FAERS Safety Report 21725857 (Version 1)
Quarter: 2022Q4

REPORT INFORMATION
  Report Type: Spontaneous
  Country: US (occurrence: US)
  Receive Date: 20221214
  Receipt Date: 20221214
  Transmission Date: 20230113
  Serious: No
  Sender: FDA-Public Use
  Company Number: US-STRIDES ARCOLAB LIMITED-2022SP012262

PATIENT
  Age: 19 Year
  Sex: Female

DRUGS (4)
  1. PROPRANOLOL [Suspect]
     Active Substance: PROPRANOLOL HYDROCHLORIDE
     Indication: Orthostatic intolerance
     Dosage: 5 MILLIGRAM EVERY EVENING
     Route: 065
  2. FLUDROCORTISONE [Suspect]
     Active Substance: FLUDROCORTISONE
     Indication: Orthostatic intolerance
     Dosage: 1 MILLIGRAM/DAY
     Route: 065
  3. IVABRADINE [Suspect]
     Active Substance: IVABRADINE
     Indication: Orthostatic intolerance
     Dosage: 2.5 MILLIGRAM PER DAY (FOR SEVERAL WEEKS)
     Route: 065
  4. MIDODRINE [Concomitant]
     Active Substance: MIDODRINE
     Indication: Orthostatic intolerance
     Dosage: 2.5-10 MG, TID
     Route: 065

REACTIONS (2)
  - Depressed mood [Unknown]
  - Drug ineffective for unapproved indication [Unknown]
